FAERS Safety Report 7820192-1 (Version None)
Quarter: 2011Q4

REPORT INFORMATION
  Report Type: 
  Country: None (occurrence: None)
  Receive Date: 20111018
  Receipt Date: 20111011
  Transmission Date: 20120403
  Serious: Yes (Hospitalization)
  Sender: FDA-Public Use
  Company Number: JP-PFIZER INC-2011242691

PATIENT
  Age: 68 Year
  Sex: Female

DRUGS (3)
  1. LANSOPRAZOLE [Concomitant]
     Dosage: 30 MG, 1X/DAY
  2. TRAMADOL [Concomitant]
     Dosage: 40 MG, 1X/DAY
  3. SUNITINIB MALATE [Suspect]
     Indication: GASTROINTESTINAL STROMAL TUMOUR
     Dosage: 50 MG, 1X/DAY, FOR 4 WEEKS FOLLOWED BY A 2-WEEK BREAK
     Route: 048
     Dates: start: 20080901

REACTIONS (1)
  - HYPERAMMONAEMIC ENCEPHALOPATHY [None]
